FAERS Safety Report 15791195 (Version 1)
Quarter: 2019Q1

REPORT INFORMATION
  Report Type: Spontaneous
  Country: US (occurrence: US)
  Receive Date: 20190104
  Receipt Date: 20190104
  Transmission Date: 20190417
  Serious: No
  Sender: FDA-Public Use
  Company Number: US-AMNEAL PHARMACEUTICALS-2018AMN00182

PATIENT
  Age: 65 Year
  Sex: Female
  Weight: 66.67 kg

DRUGS (1)
  1. IBUPROFEN. [Suspect]
     Active Substance: IBUPROFEN
     Indication: NERVE COMPRESSION
     Dosage: 1 TABLETS, 2X/DAY
     Route: 048

REACTIONS (1)
  - Alopecia [Not Recovered/Not Resolved]
